FAERS Safety Report 4831149-7 (Version None)
Quarter: 2005Q4

REPORT INFORMATION
  Report Type: 
  Country: None (occurrence: None)
  Receive Date: 20051114
  Receipt Date: 20051102
  Transmission Date: 20060501
  Serious: Yes (Hospitalization)
  Sender: FDA-Public Use
  Company Number: 2005BH002465

PATIENT
  Age: 48 Year
  Sex: Male

DRUGS (8)
  1. CHLORPROMAZINE [Suspect]
     Indication: SCHIZOPHRENIA
     Dosage: 650 MG AT BEDTIME
  2. BENZHEXOL [Concomitant]
  3. ZUCOPENTHIXOL [Concomitant]
  4. DECANOATE [Concomitant]
  5. METFORMIN [Concomitant]
  6. GLIBENCLAMIDE [Concomitant]
  7. DIAZEPAM [Concomitant]
  8. VALPROATE SODIUM [Concomitant]

REACTIONS (12)
  - ANXIETY [None]
  - BLOOD CREATINE PHOSPHOKINASE INCREASED [None]
  - BLOOD PRESSURE DECREASED [None]
  - BLOOD PRESSURE SYSTOLIC INCREASED [None]
  - COMA [None]
  - DEPRESSED LEVEL OF CONSCIOUSNESS [None]
  - DRY SKIN [None]
  - DYSKINESIA [None]
  - HEAT EXHAUSTION [None]
  - HEAT STROKE [None]
  - LOSS OF CONSCIOUSNESS [None]
  - VENTRICULAR TACHYCARDIA [None]
